FAERS Safety Report 7452210-7 (Version None)
Quarter: 2011Q2

REPORT INFORMATION
  Report Type: 
  Country: None (occurrence: None)
  Receive Date: 20110502
  Receipt Date: 20110421
  Transmission Date: 20111010
  Serious: Yes (Other)
  Sender: FDA-Public Use
  Company Number: CA-JNJFOC-20110310151

PATIENT
  Sex: Male
  Weight: 90.72 kg

DRUGS (5)
  1. DOVOBET [Concomitant]
     Route: 061
  2. CRESTOR [Concomitant]
  3. STELARA [Suspect]
     Route: 058
     Dates: start: 20100318
  4. STELARA [Suspect]
     Indication: PSORIASIS
     Route: 058
     Dates: start: 20100318
  5. PREDNISONE [Concomitant]

REACTIONS (2)
  - PHARYNGITIS STREPTOCOCCAL [None]
  - GUTTATE PSORIASIS [None]
